FAERS Safety Report 5091217-4 (Version None)
Quarter: 2006Q3

REPORT INFORMATION
  Report Type: 
  Country: None (occurrence: None)
  Receive Date: 20060824
  Receipt Date: 20060811
  Transmission Date: 20061208
  Serious: Yes (Other)
  Sender: FDA-Public Use
  Company Number: 2006098752

PATIENT
  Sex: Male
  Weight: 68.0396 kg

DRUGS (5)
  1. DILANTIN [Suspect]
     Indication: CONVULSION
     Dosage: 100 MG
  2. MOTRIN [Suspect]
     Indication: PAIN
     Dosage: 2400 MG (800 MG, 3 IN 1 D)
  3. ROBAXIN [Suspect]
     Indication: PAIN
     Dosage: 2250 MG (750 MG, 3 IN 1 D)
  4. SKELAXIN [Suspect]
     Indication: PAIN
     Dosage: 1800 MG (600 MG, 3 IN 1 D)
  5. VICODIN [Suspect]
     Indication: PAIN

REACTIONS (20)
  - ANTICONVULSANT DRUG LEVEL DECREASED [None]
  - BACK PAIN [None]
  - BODY HEIGHT DECREASED [None]
  - CONTUSION [None]
  - CONVULSION [None]
  - CORONARY ARTERY BYPASS [None]
  - DIARRHOEA [None]
  - DRUG EFFECT DECREASED [None]
  - GASTRITIS EROSIVE [None]
  - HEADACHE [None]
  - LOSS OF CONSCIOUSNESS [None]
  - MALAISE [None]
  - MUSCLE INJURY [None]
  - NECK PAIN [None]
  - PAIN IN EXTREMITY [None]
  - PELVIC PAIN [None]
  - ROAD TRAFFIC ACCIDENT [None]
  - SPEECH DISORDER [None]
  - SPINAL DISORDER [None]
  - WHIPLASH INJURY [None]
